FAERS Safety Report 7601290-4 (Version None)
Quarter: 2011Q3

REPORT INFORMATION
  Report Type: 
  Country: None (occurrence: None)
  Receive Date: 20110711
  Receipt Date: 20110628
  Transmission Date: 20111222
  Serious: Yes (Other)
  Sender: FDA-Public Use
  Company Number: US-JNJFOC-20110408703

PATIENT
  Sex: Male
  Weight: 111.13 kg

DRUGS (4)
  1. REMICADE [Suspect]
     Route: 042
     Dates: start: 20080101, end: 20100101
  2. HYDROCHLOROTHIAZIDE [Concomitant]
     Indication: HYPERTENSION
     Route: 048
  3. METFORMIN HCL [Concomitant]
     Indication: DIABETES MELLITUS
     Route: 048
  4. REMICADE [Suspect]
     Indication: PSORIASIS
     Route: 042
     Dates: start: 20110101

REACTIONS (4)
  - DRUG INEFFECTIVE [None]
  - PSORIASIS [None]
  - DIPLOPIA [None]
  - VIITH NERVE PARALYSIS [None]
